FAERS Safety Report 23649083 (Version 1)
Quarter: 2024Q1

REPORT INFORMATION
  Report Type: Spontaneous
  Country: GB (occurrence: GB)
  Receive Date: 20240319
  Receipt Date: 20240319
  Transmission Date: 20240410
  Serious: Yes (Life-Threatening, Hospitalization)
  Sender: FDA-Public Use
  Company Number: None

PATIENT
  Age: 30 Year
  Sex: Female

DRUGS (7)
  1. LACOSAMIDE [Suspect]
     Active Substance: LACOSAMIDE
     Route: 065
     Dates: start: 20240307, end: 20240307
  2. CITALOPRAM [Suspect]
     Active Substance: CITALOPRAM\CITALOPRAM HYDROBROMIDE
     Route: 065
     Dates: start: 20240307
  3. OMEPRAZOLE [Concomitant]
     Active Substance: OMEPRAZOLE
     Dates: start: 20181224, end: 20240307
  4. ALCOHOL [Suspect]
     Active Substance: ALCOHOL
     Route: 065
  5. CLOBAZAM [Suspect]
     Active Substance: CLOBAZAM
     Route: 065
     Dates: start: 20240113
  6. COCAINE [Suspect]
     Active Substance: COCAINE
     Route: 065
     Dates: start: 20240307
  7. THIAMINE [Concomitant]
     Active Substance: THIAMINE
     Dates: start: 20211110

REACTIONS (3)
  - Suicide attempt [Recovered/Resolved]
  - Pancreatitis [Unknown]
  - Pneumonia aspiration [Unknown]

NARRATIVE: CASE EVENT DATE: 20240303
